FAERS Safety Report 24269827 (Version 1)
Quarter: 2024Q3

REPORT INFORMATION
  Report Type: Spontaneous
  Country: CA (occurrence: CA)
  Receive Date: 20240830
  Receipt Date: 20240830
  Transmission Date: 20241016
  Serious: Yes (Hospitalization, Other)
  Sender: ABBVIE
  Company Number: CA-ABBVIE-5895698

PATIENT
  Age: 59 Year
  Weight: 62 kg

DRUGS (1)
  1. BOTOX [Suspect]
     Active Substance: ONABOTULINUMTOXINA
     Indication: Post-anoxic myoclonus
     Dosage: TIME INTERVAL: AS NECESSARY
     Route: 030

REACTIONS (7)
  - Hypoxia [Recovering/Resolving]
  - Disease progression [Recovering/Resolving]
  - Dysphagia [Recovering/Resolving]
  - Oxygen therapy [Recovering/Resolving]
  - Sputum retention [Recovering/Resolving]
  - Cough [Recovering/Resolving]
  - Aspiration [Recovering/Resolving]
